FAERS Safety Report 8259614-3 (Version None)
Quarter: 2012Q2

REPORT INFORMATION
  Report Type: 
  Country: None (occurrence: None)
  Receive Date: 20120404
  Receipt Date: 20120327
  Transmission Date: 20120825
  Serious: Yes (Other)
  Sender: FDA-Public Use
  Company Number: PHHY2012BR027246

PATIENT
  Sex: Male

DRUGS (3)
  1. DIOVAN [Suspect]
     Indication: HYPERTENSION
     Dosage: 0.5 DF, QD
     Route: 048
  2. RASILEZ [Suspect]
     Dosage: 0.5 DF, QD
  3. RASILEZ [Suspect]
     Indication: HYPERTENSION
     Dosage: 0.5 DF, BID

REACTIONS (1)
  - BLOOD PRESSURE DECREASED [None]
